FAERS Safety Report 7500787-5 (Version None)
Quarter: 2011Q2

REPORT INFORMATION
  Report Type: 
  Country: None (occurrence: None)
  Receive Date: 20110524
  Receipt Date: 20110517
  Transmission Date: 20111010
  Serious: Yes (Death, Other)
  Sender: FDA-Public Use
  Company Number: PHHY2011FR01763

PATIENT
  Age: 36 Year
  Sex: Male

DRUGS (7)
  1. ULTRAVIOLET-B TREATMENT [Concomitant]
  2. ENBREL [Suspect]
     Indication: PSORIASIS
     Dosage: 50 MG TWICE WEEK
     Dates: start: 20070301, end: 20070101
  3. ACITRETIN [Concomitant]
     Dosage: 35 MG,DAILY
  4. NEORAL [Suspect]
     Indication: PSORIASIS
     Dosage: 3 MG/KG DAILY
     Dates: start: 20070701, end: 20071101
  5. METHOTREXATE [Suspect]
     Indication: PSORIASIS
     Dosage: 20 MG WEEKLY
  6. DOXORUBICIN HYDROCHLORIDE [Concomitant]
     Dosage: 40 MG/M2, ONCE EVERY FOUR WEEKS
     Route: 042
     Dates: start: 20080201
  7. ACITRETIN [Concomitant]
     Dosage: 25 MG DAILY
     Dates: start: 20071101

REACTIONS (7)
  - NEOPLASM MALIGNANT [None]
  - SKIN LESION [None]
  - NODULE [None]
  - EPSTEIN-BARR VIRUS INFECTION [None]
  - CELLULITIS [None]
  - T-CELL LYMPHOMA STAGE IV [None]
  - LYMPHADENOPATHY [None]
